FAERS Safety Report 5241316-9 (Version None)
Quarter: 2007Q1

REPORT INFORMATION
  Report Type: 
  Country: None (occurrence: None)
  Receive Date: 20070215
  Receipt Date: 20070215
  Transmission Date: 20070707
  Serious: No
  Sender: FDA-Public Use
  Company Number: None

PATIENT
  Age: 63 Year
  Sex: Female
  Weight: 53.5244 kg

DRUGS (7)
  1. ZOLOFT [Suspect]
     Indication: DEPRESSION
     Dosage: ONE TABLET ONCE DAILY ORALLY
     Route: 048
     Dates: start: 20061101, end: 20070130
  2. KLONOPIN [Concomitant]
  3. METHOTREXATE [Concomitant]
  4. THYROID TAB [Concomitant]
  5. LOVASTATIN [Concomitant]
  6. DYAZIDE [Concomitant]
  7. FOLIC ACID [Concomitant]

REACTIONS (6)
  - ANXIETY [None]
  - DEPRESSIVE SYMPTOM [None]
  - FEELING ABNORMAL [None]
  - MANIA [None]
  - THERAPEUTIC RESPONSE UNEXPECTED WITH DRUG SUBSTITUTION [None]
  - WEIGHT INCREASED [None]
